FAERS Safety Report 11068448 (Version 1)
Quarter: 2015Q2

REPORT INFORMATION
  Report Type: Report from Study
  Country: US (occurrence: US)
  Receive Date: 20150427
  Receipt Date: 20150427
  Transmission Date: 20150821
  Serious: Yes (Hospitalization)
  Sender: FDA-Public Use
  Company Number: US-SANOFI-AVENTIS-2013SA084094

PATIENT
  Age: 58 Year
  Sex: Female

DRUGS (2)
  1. AUBAGIO [Suspect]
     Active Substance: TERIFLUNOMIDE
     Indication: MULTIPLE SCLEROSIS
     Route: 048
     Dates: start: 20130618
  2. AUBAGIO [Suspect]
     Active Substance: TERIFLUNOMIDE
     Indication: MULTIPLE SCLEROSIS
     Route: 048

REACTIONS (19)
  - Multiple sclerosis relapse [Unknown]
  - Migraine [Recovering/Resolving]
  - Drug dose omission [Unknown]
  - Vomiting [Unknown]
  - Unevaluable event [Unknown]
  - Blood glucose increased [Unknown]
  - Blood pressure increased [Unknown]
  - Emotional disorder [Unknown]
  - Sinus disorder [Unknown]
  - Skin abrasion [Unknown]
  - Memory impairment [Unknown]
  - Crying [Unknown]
  - Nasal congestion [Unknown]
  - Contusion [Unknown]
  - Asthenia [Unknown]
  - Dizziness [Unknown]
  - Fall [Unknown]
  - Constipation [Unknown]
  - Cough [Unknown]

NARRATIVE: CASE EVENT DATE: 20130814
